FAERS Safety Report 24303796 (Version 1)
Quarter: 2024Q3

REPORT INFORMATION
  Report Type: Spontaneous
  Country: CA (occurrence: CA)
  Receive Date: 20240910
  Receipt Date: 20240910
  Transmission Date: 20241017
  Serious: Yes (Other)
  Sender: BOEHRINGER INGELHEIM
  Company Number: CA-BoehringerIngelheim-2024-BI-050278

PATIENT
  Sex: Male

DRUGS (1)
  1. SPESOLIMAB [Suspect]
     Active Substance: SPESOLIMAB
     Indication: Generalised pustular psoriasis
     Dosage: 2 DOSES 1 WEEK APART
     Route: 041
     Dates: start: 2024

REACTIONS (2)
  - Generalised pustular psoriasis [Unknown]
  - Drug ineffective [Unknown]
